FAERS Safety Report 5813894-X (Version None)
Quarter: 2008Q3

REPORT INFORMATION
  Report Type: 
  Country: None (occurrence: None)
  Receive Date: 20080717
  Receipt Date: 20080711
  Transmission Date: 20090109
  Serious: Yes (Hospitalization, Other)
  Sender: FDA-Public Use
  Company Number: US-AMGEN-QUU290432

PATIENT
  Sex: Female

DRUGS (9)
  1. ENBREL [Suspect]
     Indication: DRUG USE FOR UNKNOWN INDICATION
     Route: 058
     Dates: start: 20041001, end: 20080401
  2. ENBREL [Suspect]
     Indication: SPONDYLOARTHROPATHY
  3. PREDNISONE TAB [Suspect]
     Indication: DRUG USE FOR UNKNOWN INDICATION
     Dates: start: 20070301
  4. DOXYCYCLINE HCL [Concomitant]
  5. TYLENOL [Concomitant]
  6. FOLIC ACID [Concomitant]
  7. CALCIUM [Concomitant]
  8. VITAMIN TAB [Concomitant]
  9. METHOTREXATE [Concomitant]
     Dates: start: 20040501, end: 20060728

REACTIONS (11)
  - ABORTION SPONTANEOUS [None]
  - BIOPSY BREAST [None]
  - CELLULITIS [None]
  - CLOSTRIDIUM DIFFICILE COLITIS [None]
  - HAEMATOMA [None]
  - INFERTILITY [None]
  - JOINT EFFUSION [None]
  - SEPSIS [None]
  - SPONDYLOARTHROPATHY [None]
  - VULVA CYST [None]
  - WISDOM TEETH REMOVAL [None]
